FAERS Safety Report 10149753 (Version 1)
Quarter: 2014Q2

REPORT INFORMATION
  Report Type: Spontaneous
  Country: BR (occurrence: BR)
  Receive Date: 20140502
  Receipt Date: 20140502
  Transmission Date: 20141212
  Serious: Yes (Hospitalization)
  Sender: FDA-Public Use
  Company Number: BR-ASTRAZENECA-2014SE28957

PATIENT
  Age: 70 Year
  Sex: Male
  Weight: 117 kg

DRUGS (7)
  1. ATACAND [Suspect]
     Indication: HYPERTENSION
     Route: 048
     Dates: start: 2013
  2. SELOZOK [Suspect]
     Indication: HYPERTENSION
     Route: 048
     Dates: start: 2013
  3. CRESTOR [Suspect]
     Indication: BLOOD CHOLESTEROL INCREASED
     Route: 048
     Dates: start: 2013
  4. GALVUS [Concomitant]
     Indication: DIABETES MELLITUS
     Route: 048
  5. INSULIN [Concomitant]
     Indication: DIABETES MELLITUS
     Route: 058
  6. NATRILIX [Concomitant]
     Route: 048
  7. TAPAZOL [Concomitant]
     Route: 048

REACTIONS (1)
  - Coronary artery occlusion [Recovered/Resolved]
